FAERS Safety Report 8318361-X (Version None)
Quarter: 2012Q2

REPORT INFORMATION
  Report Type: 
  Country: None (occurrence: None)
  Receive Date: 20120426
  Receipt Date: 20120426
  Transmission Date: 20120825
  Serious: Yes (Hospitalization)
  Sender: FDA-Public Use
  Company Number: None

PATIENT
  Sex: Male
  Weight: 70 kg

DRUGS (3)
  1. CISPLATIN [Suspect]
     Dosage: 40 MG EVERY 2 WEEKS IV
     Route: 042
     Dates: start: 20120410
  2. GEMCITABINE [Suspect]
     Indication: BILE DUCT CANCER
     Dosage: 1350 MG EVERY 2 WEEKS IV
     Route: 042
     Dates: start: 20120410
  3. ERLOTINIB HYDROCHLORIDE [Concomitant]

REACTIONS (2)
  - BACK PAIN [None]
  - NECK PAIN [None]
